FAERS Safety Report 7692352-4 (Version None)
Quarter: 2011Q3

REPORT INFORMATION
  Report Type: 
  Country: None (occurrence: None)
  Receive Date: 20110818
  Receipt Date: 20110803
  Transmission Date: 20111222
  Serious: Yes (Other)
  Sender: FDA-Public Use
  Company Number: US-BAYER-2011-069539

PATIENT
  Sex: Female

DRUGS (1)
  1. ASPIRIN [Suspect]
     Route: 048

REACTIONS (2)
  - BALANCE DISORDER [None]
  - VISUAL ACUITY REDUCED [None]
